FAERS Safety Report 18733672 (Version 1)
Quarter: 2021Q1

REPORT INFORMATION
  Report Type: Spontaneous
  Country: US (occurrence: US)
  Receive Date: 20210113
  Receipt Date: 20210113
  Transmission Date: 20210419
  Serious: Yes (Hospitalization, Other)
  Sender: FDA-Public Use
  Company Number: US-AUROBINDO-AUR-APL-2021-001167

PATIENT
  Age: 78 Year
  Sex: Male

DRUGS (1)
  1. METFORMIN [Suspect]
     Active Substance: METFORMIN HYDROCHLORIDE
     Indication: DIABETES MELLITUS
     Dosage: UNK
     Route: 065

REACTIONS (7)
  - Hyperkalaemia [Unknown]
  - Metabolic acidosis [Unknown]
  - Blood lactic acid increased [Recovering/Resolving]
  - Lactic acidosis [Unknown]
  - Cardiogenic shock [Unknown]
  - Asthenia [Unknown]
  - Fall [Unknown]
